FAERS Safety Report 8289381-9 (Version None)
Quarter: 2012Q1

REPORT INFORMATION
  Report Type: 
  Country: None (occurrence: None)
  Receive Date: 20120322
  Receipt Date: 20120220
  Transmission Date: 20120608
  Serious: Yes (Death)
  Sender: FDA-Public Use
  Company Number: UTC-015824

PATIENT
  Age: 67 Year
  Sex: Female

DRUGS (3)
  1. TYVASO [Suspect]
     Indication: PULMONARY ARTERIAL HYPERTENSION
     Dosage: 288 MCG (72 MCG, 4 IN 1 D) INHALATION
     Route: 055
     Dates: start: 20100420
  2. TRACLEER [Concomitant]
  3. ADCIRCA [Concomitant]

REACTIONS (1)
  - DEATH [None]
